FAERS Safety Report 14738825 (Version 1)
Quarter: 2018Q2

REPORT INFORMATION
  Report Type: Spontaneous
  Country: CA (occurrence: CA)
  Receive Date: 20180409
  Receipt Date: 20180409
  Transmission Date: 20180711
  Serious: Yes (Life-Threatening)
  Sender: FDA-Public Use
  Company Number: CA-TEVA-2018-CA-878293

PATIENT
  Sex: Female

DRUGS (2)
  1. FLUCONAZOLE. [Suspect]
     Active Substance: FLUCONAZOLE
     Route: 065
  2. MDMA [Suspect]
     Active Substance: MIDOMAFETAMINE
     Route: 065

REACTIONS (2)
  - Loss of consciousness [Recovered/Resolved]
  - Drug interaction [Recovered/Resolved]
